FAERS Safety Report 6698913-3 (Version None)
Quarter: 2010Q2

REPORT INFORMATION
  Report Type: 
  Country: None (occurrence: None)
  Receive Date: 20100427
  Receipt Date: 20100423
  Transmission Date: 20101027
  Serious: Yes (Hospitalization)
  Sender: FDA-Public Use
  Company Number: A0788257A

PATIENT
  Age: 68 Year
  Sex: Male
  Weight: 126.8 kg

DRUGS (5)
  1. AVANDIA [Suspect]
     Dosage: 2MG PER DAY
     Route: 048
  2. AVANDAMET [Suspect]
     Route: 048
     Dates: start: 20040101
  3. LOPRESSOR [Concomitant]
  4. NORVASC [Concomitant]
  5. INSULIN [Concomitant]

REACTIONS (5)
  - AMPUTATION [None]
  - CEREBROVASCULAR ACCIDENT [None]
  - MYOCARDIAL INFARCTION [None]
  - STAPHYLOCOCCAL INFECTION [None]
  - SWELLING [None]
